FAERS Safety Report 25599246 (Version 2)
Quarter: 2025Q4

REPORT INFORMATION
  Report Type: Spontaneous
  Country: US (occurrence: US)
  Receive Date: 20250724
  Receipt Date: 20251030
  Transmission Date: 20260117
  Serious: No
  Sender: SANDOZ
  Company Number: US-SANDOZ-SDZ2025US050967

PATIENT
  Sex: Female

DRUGS (3)
  1. ALBUTEROL SULFATE [Suspect]
     Active Substance: ALBUTEROL SULFATE
     Dosage: 2-3 TIMES PER WEEK, ORAL INHALATION
     Route: 055
  2. ALBUTEROL SULFATE [Suspect]
     Active Substance: ALBUTEROL SULFATE
     Indication: Chronic obstructive pulmonary disease
     Dosage: 2-3 TIMES PER WEEK
     Route: 055
  3. ALBUTEROL SULFATE [Suspect]
     Active Substance: ALBUTEROL SULFATE
     Dosage: 2-3 TIMES PER WEEK, ORAL INHALATION
     Route: 055

REACTIONS (3)
  - Product dose omission issue [Unknown]
  - Device dispensing error [Unknown]
  - Device issue [Unknown]

NARRATIVE: CASE EVENT DATE: 20250101
